FAERS Safety Report 9402034 (Version 2)
Quarter: 2013Q4

REPORT INFORMATION
  Report Type: Report from Study
  Country: JP (occurrence: JP)
  Receive Date: 20130716
  Receipt Date: 20131120
  Transmission Date: 20140711
  Serious: Yes (Hospitalization, Other)
  Sender: FDA-Public Use
  Company Number: PHHY2013JP021398

PATIENT
  Age: 17 Year
  Sex: Female

DRUGS (36)
  1. LEPONEX / CLOZARIL [Suspect]
     Indication: SCHIZOPHRENIA, PARANOID TYPE
     Dosage: 12.5 MG, QD
     Route: 048
     Dates: start: 20120615, end: 20120615
  2. LEPONEX / CLOZARIL [Suspect]
     Dosage: 25 MG, QD
     Route: 048
     Dates: start: 20120616, end: 20120618
  3. LEPONEX / CLOZARIL [Suspect]
     Dosage: 50 MG, QD
     Route: 048
     Dates: start: 20120619, end: 20120621
  4. LEPONEX / CLOZARIL [Suspect]
     Dosage: 75 MG, QD
     Route: 048
     Dates: start: 20120622, end: 20120623
  5. LEPONEX / CLOZARIL [Suspect]
     Dosage: 100 MG, QD
     Route: 048
     Dates: start: 20120624, end: 20120625
  6. LEPONEX / CLOZARIL [Suspect]
     Dosage: 125 MG, QD
     Route: 048
     Dates: start: 20120626, end: 20120628
  7. LEPONEX / CLOZARIL [Suspect]
     Dosage: 150 MG, QD
     Route: 048
     Dates: start: 20120629, end: 20120701
  8. LEPONEX / CLOZARIL [Suspect]
     Dosage: 175 MG, QD
     Route: 048
     Dates: start: 20120702, end: 20120704
  9. LEPONEX / CLOZARIL [Suspect]
     Dosage: 200 MG, QD
     Route: 048
     Dates: start: 20120705, end: 20120705
  10. LEPONEX / CLOZARIL [Suspect]
     Dosage: 250 MG, QD
     Route: 048
     Dates: start: 20120706, end: 20120708
  11. LEPONEX / CLOZARIL [Suspect]
     Dosage: 300 MG, QD
     Route: 048
     Dates: start: 20120709, end: 20120712
  12. LEPONEX / CLOZARIL [Suspect]
     Dosage: 250 MG, QD
     Route: 048
     Dates: start: 20120713, end: 20120715
  13. LEPONEX / CLOZARIL [Suspect]
     Dosage: 200 MG, QD
     Route: 048
     Dates: start: 20120716, end: 20120809
  14. LEPONEX / CLOZARIL [Suspect]
     Dosage: 250 MG, QD
     Route: 048
     Dates: start: 20120810
  15. LEPONEX / CLOZARIL [Suspect]
     Dosage: 400 MG, QD
     Route: 048
     Dates: end: 20121227
  16. LEPONEX / CLOZARIL [Suspect]
     Dosage: 300 MG, QD
     Route: 048
     Dates: start: 20121228
  17. PURSENIDE [Concomitant]
     Dosage: 24 MG, UNK
     Route: 048
     Dates: start: 20120709
  18. CONTOMIN [Concomitant]
     Dosage: 50 MG, UNK
     Route: 048
     Dates: start: 20120615
  19. CONTOMIN [Concomitant]
     Dosage: 25 MG, UNK
     Route: 048
     Dates: end: 20120628
  20. VEGETAMIN A [Concomitant]
     Dosage: 1 DF, UNK
     Route: 048
     Dates: start: 20120615, end: 20120618
  21. VEGETAMIN B [Concomitant]
     Dosage: 1 DF, UNK
     Route: 048
     Dates: start: 20120619, end: 20120726
  22. LIMAS [Concomitant]
     Indication: SCHIZOPHRENIA, PARANOID TYPE
     Dosage: 600 MG, UNK
     Route: 048
     Dates: start: 20120615
  23. ROHYPNOL [Concomitant]
     Indication: SCHIZOPHRENIA, PARANOID TYPE
     Dosage: 2 MG, UNK
     Route: 048
     Dates: start: 20100223
  24. FERO-GRADUMET [Concomitant]
     Dosage: 105 MG, UNK
     Route: 048
  25. GLYCERIN [Concomitant]
     Dosage: 1 DF, UNK
     Dates: start: 20120705
  26. GLYCERIN [Concomitant]
     Dosage: 1 DF, UNK
     Dates: end: 20120710
  27. MAGLAX [Concomitant]
     Dosage: 990 MG, UNK
     Route: 048
     Dates: start: 20120709
  28. TARIVIT [Concomitant]
     Dosage: 10 DF, UNK
     Dates: start: 20120727
  29. LOXOT [Concomitant]
     Dosage: 60 MG, UNK
     Route: 048
     Dates: start: 20120726, end: 20120726
  30. MUCOSTA [Concomitant]
     Dosage: 100 MG, UNK
     Route: 048
     Dates: start: 20120726, end: 20120726
  31. GENINAX [Concomitant]
     Dosage: 200 MG, UNK
     Route: 048
     Dates: start: 20120726
  32. GENINAX [Concomitant]
     Dosage: 400 MG, UNK
     Route: 048
     Dates: end: 20120902
  33. MINOMYCIN [Concomitant]
     Dosage: 200 MG, UNK
     Route: 048
     Dates: start: 20120808
  34. MINOMYCIN [Concomitant]
     Dosage: 100 MG, UNK
     Route: 048
     Dates: end: 20120827
  35. KERATINAMIN [Concomitant]
     Dosage: UNK
     Dates: start: 20120827
  36. GENTACIN [Concomitant]
     Dosage: UNK
     Dates: start: 20120808

REACTIONS (3)
  - Convulsion [Recovered/Resolved]
  - Loss of consciousness [Unknown]
  - Lymphocyte count decreased [Unknown]
